FAERS Safety Report 13756221 (Version 5)
Quarter: 2020Q3

REPORT INFORMATION
  Report Type: Report from Study
  Country: UA (occurrence: UA)
  Receive Date: 20170714
  Receipt Date: 20170928
  Transmission Date: 20201105
  Serious: Yes (Hospitalization, Other)
  Sender: FDA-Public Use
  Company Number: UA-JNJFOC-20170706409

PATIENT
  Age: 57 Year
  Sex: Female
  Weight: 104 kg

DRUGS (4)
  1. BORTEZOMIB. [Suspect]
     Active Substance: BORTEZOMIB
     Indication: PLASMA CELL MYELOMA
     Dosage: ON DAY 1,4,8,11 OF EACH CYCLE
     Route: 058
     Dates: start: 20150730, end: 20160105
  2. DARATUMUMAB [Suspect]
     Active Substance: DARATUMUMAB
     Route: 042
  3. DEXAMETHASONE. [Suspect]
     Active Substance: DEXAMETHASONE
     Indication: PLASMA CELL MYELOMA
     Dosage: ON 1, 2,4,5,8,9,11,12 FIRST 8 CYCLES
     Route: 048
     Dates: start: 20150730, end: 20160109
  4. DARATUMUMAB [Suspect]
     Active Substance: DARATUMUMAB
     Indication: PLASMA CELL MYELOMA
     Route: 042
     Dates: start: 20150730, end: 20170608

REACTIONS (1)
  - Aphthous ulcer [Recovered/Resolved with Sequelae]

NARRATIVE: CASE EVENT DATE: 20170707
